FAERS Safety Report 11046933 (Version 2)
Quarter: 2017Q3

REPORT INFORMATION
  Report Type: Spontaneous
  Country: BF (occurrence: BF)
  Receive Date: 20150420
  Receipt Date: 20170811
  Transmission Date: 20171127
  Serious: Yes (Death)
  Sender: FDA-Public Use
  Company Number: BF-SUN PHARMACEUTICAL INDUSTRIES LTD-2015R1-95645

PATIENT
  Age: 22 Year
  Sex: Female

DRUGS (1)
  1. FLUCONAZOLE. [Suspect]
     Active Substance: FLUCONAZOLE
     Indication: HISTOPLASMOSIS DISSEMINATED
     Dosage: 800 MG, DAILY
     Route: 065

REACTIONS (2)
  - Anaemia [Fatal]
  - General physical health deterioration [Fatal]
